FAERS Safety Report 18704979 (Version 1)
Quarter: 2021Q1

REPORT INFORMATION
  Report Type: Spontaneous
  Country: US (occurrence: US)
  Receive Date: 20210106
  Receipt Date: 20210106
  Transmission Date: 20210419
  Serious: No
  Sender: FDA-Public Use
  Company Number: US-ELI_LILLY_AND_COMPANY-US202012007152

PATIENT
  Age: 44 Year
  Sex: Female

DRUGS (3)
  1. HUMULIN 70/30 [Suspect]
     Active Substance: INSULIN HUMAN
     Indication: PRODUCT USED FOR UNKNOWN INDICATION
     Dosage: UNK UNK, UNKNOWN
     Route: 065
  2. HUMULIN 70/30 [Suspect]
     Active Substance: INSULIN HUMAN
     Dosage: UNK UNK, UNKNOWN
     Route: 065
  3. HUMULIN 70/30 [Suspect]
     Active Substance: INSULIN HUMAN
     Indication: PRODUCT USED FOR UNKNOWN INDICATION
     Dosage: UNK UNK, UNKNOWN
     Route: 065

REACTIONS (10)
  - Influenza [Recovered/Resolved]
  - Asthenia [Recovered/Resolved]
  - Visual impairment [Unknown]
  - Blood glucose decreased [Unknown]
  - Illness [Recovered/Resolved]
  - Hypertension [Recovered/Resolved]
  - Eating disorder [Recovered/Resolved]
  - Vitreous floaters [Recovered/Resolved]
  - Insomnia [Recovered/Resolved]
  - Hunger [Unknown]

NARRATIVE: CASE EVENT DATE: 20201210
